FAERS Safety Report 9819346 (Version 2)
Quarter: 2014Q1

REPORT INFORMATION
  Report Type: Spontaneous
  Country: CH (occurrence: CH)
  Receive Date: 20140115
  Receipt Date: 20140227
  Transmission Date: 20141002
  Serious: Yes (Other)
  Sender: FDA-Public Use
  Company Number: CH-PFIZER INC-2014011270

PATIENT
  Age: 29 Year
  Sex: Male
  Weight: 100 kg

DRUGS (1)
  1. CHAMPIX [Suspect]
     Indication: SMOKING CESSATION THERAPY
     Dosage: STARTER PACKAGE, FROM 0.5 UP TO 2 MG
     Route: 048
     Dates: start: 20140107, end: 20140203

REACTIONS (1)
  - Stupor [Recovered/Resolved]
